FAERS Safety Report 5007609-5 (Version None)
Quarter: 2006Q2

REPORT INFORMATION
  Report Type: 
  Country: None (occurrence: None)
  Receive Date: 20060522
  Receipt Date: 20060420
  Transmission Date: 20061013
  Serious: Yes (Other)
  Sender: FDA-Public Use
  Company Number: PHBS2006DK06203

PATIENT
  Age: 9 Year
  Sex: Male

DRUGS (3)
  1. RITALIN [Suspect]
     Indication: ATTENTION DEFICIT/HYPERACTIVITY DISORDER
     Dosage: 10 MG, TID
     Route: 048
     Dates: start: 20050725, end: 20060228
  2. RITALIN [Suspect]
     Dosage: 10 MG, QID
     Route: 048
     Dates: start: 20060301
  3. RITALIN [Suspect]
     Dosage: 10 MG, TID
     Route: 048

REACTIONS (3)
  - CONFUSIONAL STATE [None]
  - CYANOSIS [None]
  - FEELING ABNORMAL [None]
